FAERS Safety Report 6936982-3 (Version None)
Quarter: 2010Q3

REPORT INFORMATION
  Report Type: 
  Country: None (occurrence: None)
  Receive Date: 20100817
  Receipt Date: 20100805
  Transmission Date: 20110219
  Serious: Yes (Hospitalization)
  Sender: FDA-Public Use
  Company Number: 2010MA001452

PATIENT
  Age: 48 Year
  Sex: Male

DRUGS (2)
  1. FEVERALL [Suspect]
     Indication: OTITIS MEDIA
  2. AMOXICILLIN [Suspect]
     Indication: OTITIS MEDIA

REACTIONS (5)
  - ACUTE GENERALISED EXANTHEMATOUS PUSTULOSIS [None]
  - ALANINE AMINOTRANSFERASE INCREASED [None]
  - GAMMA-GLUTAMYLTRANSFERASE INCREASED [None]
  - HEPATOMEGALY [None]
  - SKIN TEST POSITIVE [None]
